FAERS Safety Report 9176820 (Version 1)
Quarter: 2013Q1

REPORT INFORMATION
  Report Type: Spontaneous
  Country: US (occurrence: None)
  Receive Date: 20130320
  Receipt Date: 20130320
  Transmission Date: 20140127
  Serious: Yes (Other)
  Sender: FDA-Public Use
  Company Number: None

PATIENT
  Age: 44 Year
  Sex: Female
  Weight: 56.7 kg

DRUGS (1)
  1. BUPROPION [Suspect]
     Dates: start: 20130215, end: 20130301

REACTIONS (5)
  - Product substitution issue [None]
  - Arthralgia [None]
  - Abdominal distension [None]
  - Constipation [None]
  - Drug effect decreased [None]
